FAERS Safety Report 17878502 (Version 2)
Quarter: 2020Q3

REPORT INFORMATION
  Report Type: Spontaneous
  Country: US (occurrence: US)
  Receive Date: 20200610
  Receipt Date: 20200816
  Transmission Date: 20201103
  Serious: Yes (Hospitalization)
  Sender: FDA-Public Use
  Company Number: US-BIOGEN-2020BI00882922

PATIENT
  Age: 57 Year
  Sex: Male

DRUGS (1)
  1. TYSABRI [Suspect]
     Active Substance: NATALIZUMAB
     Indication: IMMUNE-MEDIATED ENCEPHALITIS
     Route: 065

REACTIONS (3)
  - Drug effective for unapproved indication [Unknown]
  - Panic attack [Unknown]
  - Seizure [Unknown]
